FAERS Safety Report 8613628-X (Version None)
Quarter: 2012Q3

REPORT INFORMATION
  Report Type: 
  Country: None (occurrence: None)
  Receive Date: 20120823
  Receipt Date: 20120809
  Transmission Date: 20120928
  Serious: Yes (Hospitalization, Other)
  Sender: FDA-Public Use
  Company Number: US-009507513-1203USA01938

PATIENT

DRUGS (8)
  1. FOSAMAX [Suspect]
     Indication: OSTEOPOROSIS
     Dosage: 10 MG, UNK
     Route: 048
     Dates: start: 20000101, end: 20010701
  2. ALENDRONATE SODIUM [Suspect]
     Indication: OSTEOPOROSIS
     Dosage: 70 MG, UNK
     Dates: start: 20080301, end: 20100101
  3. GARLIC [Concomitant]
     Dosage: UNK, QD
  4. CYANOCOBALAMIN [Concomitant]
     Dosage: UNK, QD
  5. IRON (UNSPECIFIED) [Concomitant]
     Dosage: UNK, QD
  6. FOSAMAX [Suspect]
     Dosage: 70 MG, QW
     Dates: start: 20010801, end: 20100101
  7. VITAMINS (UNSPECIFIED) [Concomitant]
     Dosage: UNK, QD
  8. OMEGA-3-ACID ETHYL ESTERS [Concomitant]
     Dosage: UNK, QD

REACTIONS (17)
  - FEMUR FRACTURE [None]
  - CHOLECYSTECTOMY [None]
  - PNEUMONIA [None]
  - OSTEOARTHRITIS [None]
  - ANAEMIA [None]
  - OESOPHAGEAL CANDIDIASIS [None]
  - FALL [None]
  - HYPONATRAEMIA [None]
  - CORONARY ARTERY DISEASE [None]
  - CARDIAC FAILURE CONGESTIVE [None]
  - ENTEROCOCCAL INFECTION [None]
  - CHRONIC OBSTRUCTIVE PULMONARY DISEASE [None]
  - BUNDLE BRANCH BLOCK [None]
  - DEHYDRATION [None]
  - ANXIETY [None]
  - DELIRIUM [None]
  - GASTROOESOPHAGEAL REFLUX DISEASE [None]
